FAERS Safety Report 8798601 (Version 1)
Quarter: 2012Q4

REPORT INFORMATION
  Report Type: 
  Country: US (occurrence: US)
  Receive Date: 20120917
  Receipt Date: 20120917
  Transmission Date: 20130627
  Serious: Yes (Hospitalization)
  Sender: FDA-Public Use
  Company Number: US-JNJFOC-20120904077

PATIENT
  Sex: Female
  Weight: 61.24 kg

DRUGS (8)
  1. ELMIRON [Suspect]
     Indication: CYSTITIS INTERSTITIAL
     Route: 048
     Dates: start: 2001
  2. OXYCONTIN [Suspect]
     Indication: PAIN
     Route: 048
  3. ATARAX [Concomitant]
     Indication: CYSTITIS INTERSTITIAL
     Route: 048
  4. ZANAFLEX [Concomitant]
     Indication: MUSCLE RELAXANT THERAPY
     Route: 048
  5. EVENING PRIMROSE OIL [Concomitant]
     Indication: PELVIC PAIN
     Route: 048
  6. LEXAPRO [Concomitant]
     Indication: ANTIDEPRESSANT THERAPY
     Route: 048
  7. TRAZODONE [Concomitant]
     Indication: SLEEP DISORDER
     Dosage: 100 mg once at bed time
     Route: 048
  8. PRELIEF [Concomitant]
     Indication: GASTRIC PH DECREASED
     Dosage: before meals
     Route: 048

REACTIONS (6)
  - Congenital anomaly [Not Recovered/Not Resolved]
  - Incorrect dose administered [Recovered/Resolved]
  - Pelvic pain [Not Recovered/Not Resolved]
  - Nausea [Not Recovered/Not Resolved]
  - Dyspepsia [Unknown]
  - Fibromyalgia [Not Recovered/Not Resolved]
